FAERS Safety Report 6831730-X (Version None)
Quarter: 2010Q3

REPORT INFORMATION
  Report Type: 
  Country: None (occurrence: None)
  Receive Date: 20100706
  Receipt Date: 20100618
  Transmission Date: 20110219
  Serious: Yes (Hospitalization)
  Sender: FDA-Public Use
  Company Number: 2010BI010017

PATIENT
  Age: 55 Year
  Sex: Male

DRUGS (6)
  1. ZEVALIN [Suspect]
     Indication: EXTRANODAL MARGINAL ZONE B-CELL LYMPHOMA (MALT TYPE) STAGE III
     Dosage: 965 MBQ, 1X; IV
     Route: 042
     Dates: start: 20090819, end: 20090826
  2. RITUXIMAB [Concomitant]
  3. OTHER ANALGESICS AND ANTIPYRETICS [Concomitant]
  4. ANTHIHISTAMINES [Concomitant]
  5. RITUXIMAB [Concomitant]
  6. FLUDARA [Concomitant]

REACTIONS (1)
  - CYSTITIS HAEMORRHAGIC [None]
